FAERS Safety Report 8572753-2 (Version None)
Quarter: 2012Q3

REPORT INFORMATION
  Report Type: 
  Country: None (occurrence: None)
  Receive Date: 20120806
  Receipt Date: 20120801
  Transmission Date: 20120928
  Serious: No
  Sender: FDA-Public Use
  Company Number: US-PFIZER INC-2012188008

PATIENT
  Age: 53 Year
  Sex: Male
  Weight: 97.506 kg

DRUGS (11)
  1. LYRICA [Suspect]
     Dosage: 150 MG, UNK
     Route: 048
     Dates: start: 20120101
  2. LYRICA [Suspect]
     Dosage: 50 MG, UNK
     Route: 048
     Dates: start: 20120101
  3. LYRICA [Suspect]
     Dosage: 200 MG, UNK
     Route: 048
     Dates: start: 20120101
  4. LYRICA [Suspect]
     Dosage: 150 MG, UNK
     Route: 048
     Dates: start: 20120101
  5. IMITREX [Suspect]
     Indication: MIGRAINE
     Dosage: 100 MG, AS NEEDED
     Route: 048
  6. LYRICA [Suspect]
     Indication: HEADACHE
     Dosage: 25 MG, DAILY
     Route: 048
     Dates: start: 20120101
  7. LYRICA [Suspect]
     Dosage: 75 MG, UNK
     Route: 048
     Dates: start: 20120101
  8. LYRICA [Suspect]
     Dosage: UNK
     Route: 048
     Dates: start: 20120101
  9. LYRICA [Suspect]
     Dosage: 100 MG, UNK
     Route: 048
     Dates: start: 20120101
  10. LOSARTAN POTASSIUM [Concomitant]
     Indication: HYPERTENSION
     Dosage: 50 MG, DAILY
  11. RELPAX [Suspect]
     Indication: MIGRAINE
     Dosage: 40 MG, AS NEEDED
     Route: 048
     Dates: start: 20120101

REACTIONS (4)
  - ACROCHORDON [None]
  - DRUG INEFFECTIVE [None]
  - HEADACHE [None]
  - DRY SKIN [None]
